FAERS Safety Report 7523316-9 (Version None)
Quarter: 2011Q2

REPORT INFORMATION
  Report Type: 
  Country: None (occurrence: None)
  Receive Date: 20110603
  Receipt Date: 20110527
  Transmission Date: 20111010
  Serious: Yes (Death, Hospitalization)
  Sender: FDA-Public Use
  Company Number: A0907802A

PATIENT
  Age: 46 Year
  Sex: Female

DRUGS (1)
  1. AVANDIA [Suspect]
     Dosage: 4MG TWICE PER DAY
     Route: 048
     Dates: start: 19990101, end: 20090120

REACTIONS (6)
  - DIABETES MELLITUS [None]
  - MYOCARDIAL INFARCTION [None]
  - HYPERKALAEMIA [None]
  - RENAL FAILURE CHRONIC [None]
  - CARDIAC ARREST [None]
  - STENT PLACEMENT [None]
